FAERS Safety Report 7969590-6 (Version None)
Quarter: 2011Q4

REPORT INFORMATION
  Report Type: 
  Country: None (occurrence: None)
  Receive Date: 20111212
  Receipt Date: 20111206
  Transmission Date: 20120403
  Serious: Yes (Other)
  Sender: FDA-Public Use
  Company Number: CA-PFIZER INC-2011298682

PATIENT
  Sex: Female

DRUGS (1)
  1. ADVIL COLD AND SINUS [Suspect]
     Indication: NASOPHARYNGITIS
     Dosage: 1 DF, 2X/DAY
     Dates: start: 20111205, end: 20111205

REACTIONS (3)
  - PALPITATIONS [None]
  - DYSPNOEA [None]
  - INSOMNIA [None]
